FAERS Safety Report 25173607 (Version 1)
Quarter: 2025Q2

REPORT INFORMATION
  Report Type: Spontaneous
  Country: US (occurrence: US)
  Receive Date: 20250408
  Receipt Date: 20250408
  Transmission Date: 20250716
  Serious: Yes (Life-Threatening, Hospitalization)
  Sender: MYLAN
  Company Number: US-MYLANLABS-2025M1029503

PATIENT
  Age: 45 Year
  Sex: Female

DRUGS (3)
  1. ADENOSINE [Suspect]
     Active Substance: ADENOSINE
     Indication: Supraventricular tachycardia
  2. AMIODARONE [Suspect]
     Active Substance: AMIODARONE
     Indication: Supraventricular tachycardia
  3. IBUTILIDE [Suspect]
     Active Substance: IBUTILIDE
     Indication: Supraventricular tachycardia

REACTIONS (1)
  - Drug ineffective [Unknown]
